FAERS Safety Report 6600723-X (Version None)
Quarter: 2010Q1

REPORT INFORMATION
  Report Type: 
  Country: None (occurrence: None)
  Receive Date: 20100223
  Receipt Date: 20100223
  Transmission Date: 20100710
  Serious: Yes (Other)
  Sender: FDA-Public Use
  Company Number: None

PATIENT
  Age: 14 Year
  Sex: Female
  Weight: 54.4316 kg

DRUGS (3)
  1. LAMICTAL [Suspect]
     Indication: AFFECTIVE DISORDER
     Dosage: 12.5MG TO 50MG ONCE PER PM PO
     Route: 048
     Dates: start: 20091101, end: 20100201
  2. LAMICTAL [Suspect]
     Indication: ANXIETY DISORDER
     Dosage: 12.5MG TO 50MG ONCE PER PM PO
     Route: 048
     Dates: start: 20091101, end: 20100201
  3. LAMICTAL [Suspect]
     Indication: DYSTHYMIC DISORDER
     Dosage: 12.5MG TO 50MG ONCE PER PM PO
     Route: 048
     Dates: start: 20091101, end: 20100201

REACTIONS (8)
  - AFFECTIVE DISORDER [None]
  - ANXIETY [None]
  - BLOOD PRESSURE DECREASED [None]
  - DEPRESSION [None]
  - HEART RATE DECREASED [None]
  - HYPOGLYCAEMIA [None]
  - PALLOR [None]
  - UNEVALUABLE EVENT [None]
